FAERS Safety Report 12623501 (Version 1)
Quarter: 2016Q3

REPORT INFORMATION
  Report Type: Spontaneous
  Country: US (occurrence: US)
  Receive Date: 20160804
  Receipt Date: 20160804
  Transmission Date: 20161109
  Serious: Yes (Other)
  Sender: FDA-Public Use
  Company Number: US-FRI-1000086661

PATIENT
  Age: 75 Year
  Sex: Female

DRUGS (4)
  1. NAMENDA XR [Suspect]
     Active Substance: MEMANTINE HYDROCHLORIDE
     Indication: DEMENTIA
     Dates: start: 201511
  2. NAMENDA [Suspect]
     Active Substance: MEMANTINE HYDROCHLORIDE
     Indication: DEMENTIA
     Dosage: 20 MG
     Route: 048
     Dates: start: 201511, end: 201511
  3. SIMVASTATIN. [Concomitant]
     Active Substance: SIMVASTATIN
     Indication: BLOOD CHOLESTEROL INCREASED
     Route: 048
  4. NAMENDA XR [Suspect]
     Active Substance: MEMANTINE HYDROCHLORIDE

REACTIONS (5)
  - Drug dose omission [Recovered/Resolved]
  - Dementia [Recovering/Resolving]
  - Memory impairment [Recovering/Resolving]
  - Drug ineffective [Unknown]
  - Accidental overdose [Recovered/Resolved]

NARRATIVE: CASE EVENT DATE: 201511
